FAERS Safety Report 6047798-7 (Version None)
Quarter: 2009Q1

REPORT INFORMATION
  Report Type: 
  Country: None (occurrence: None)
  Receive Date: 20090123
  Receipt Date: 20090113
  Transmission Date: 20090719
  Serious: Yes (Life-Threatening, Hospitalization)
  Sender: FDA-Public Use
  Company Number: FR-AMGEN-US328850

PATIENT
  Sex: Female

DRUGS (5)
  1. ENBREL [Suspect]
     Indication: ANKYLOSING SPONDYLITIS
     Dosage: UNKNOWN
     Route: 058
     Dates: start: 20080815, end: 20080924
  2. SERETIDE [Concomitant]
     Indication: ASTHMA
     Dosage: UNKNOWN
  3. ACETAMINOPHEN W/ CODEINE [Concomitant]
     Dosage: UNKNOWN
  4. CELEBREX [Concomitant]
     Dosage: UNKNOWN
  5. RIVOTRIL [Concomitant]
     Dosage: UNKNOWN

REACTIONS (6)
  - ERYSIPELAS [None]
  - MUSCULOSKELETAL PAIN [None]
  - NECK PAIN [None]
  - RENAL FAILURE ACUTE [None]
  - SEPTIC SHOCK [None]
  - STREPTOCOCCAL BACTERAEMIA [None]
